FAERS Safety Report 7763895-X (Version None)
Quarter: 2011Q3

REPORT INFORMATION
  Report Type: 
  Country: None (occurrence: None)
  Receive Date: 20110921
  Receipt Date: 20110914
  Transmission Date: 20111222
  Serious: Yes (Hospitalization)
  Sender: FDA-Public Use
  Company Number: JP-BAYER-201014072BYL

PATIENT
  Age: 25 Year
  Sex: Female
  Weight: 39 kg

DRUGS (3)
  1. CRESTOR [Concomitant]
     Indication: DYSLIPIDAEMIA
     Dosage: 2.5 MG, QD
     Route: 048
     Dates: start: 20100303, end: 20100811
  2. BETASERON [Suspect]
     Indication: MULTIPLE SCLEROSIS
     Dosage: 8 MIU, UNK
     Route: 058
     Dates: start: 20040809, end: 20100825
  3. AVAPRO [Concomitant]
     Indication: OEDEMA
     Dosage: 50 MG, QD
     Route: 048
     Dates: start: 20100730, end: 20100811

REACTIONS (4)
  - NEPHROTIC SYNDROME [None]
  - OEDEMA [None]
  - PROTEINURIA [None]
  - BLOOD ALBUMIN DECREASED [None]
